FAERS Safety Report 25317480 (Version 1)
Quarter: 2025Q2

REPORT INFORMATION
  Report Type: Other
  Country: US (occurrence: US)
  Receive Date: 20250515
  Receipt Date: 20250515
  Transmission Date: 20250717
  Serious: Yes (Life-Threatening, Hospitalization, Other)
  Sender: DEXCEL
  Company Number: US-DEXPHARM-2025-2653

PATIENT
  Age: 80 Year
  Sex: Female

DRUGS (1)
  1. PANTOPRAZOLE [Suspect]
     Active Substance: PANTOPRAZOLE

REACTIONS (4)
  - Gastric perforation [Unknown]
  - Procedural failure [Unknown]
  - Gastric haemorrhage [Unknown]
  - Faeces discoloured [Unknown]
